FAERS Safety Report 4661452-5 (Version None)
Quarter: 2005Q2

REPORT INFORMATION
  Report Type: 
  Country: None (occurrence: None)
  Receive Date: 20050513
  Receipt Date: 20050318
  Transmission Date: 20051028
  Serious: Yes (Life-Threatening, Hospitalization)
  Sender: FDA-Public Use
  Company Number: FR-GLAXOSMITHKLINE-B0376097A

PATIENT
  Age: 72 Year
  Sex: Female

DRUGS (9)
  1. DEROXAT [Suspect]
     Route: 048
     Dates: start: 20050211, end: 20050304
  2. SKENAN LP [Suspect]
     Indication: ABDOMINAL PAIN
     Dosage: 30MG TWICE PER DAY
     Route: 048
  3. MEPRONIZINE [Concomitant]
     Indication: INSOMNIA
     Dosage: 1TAB PER DAY
     Route: 048
     Dates: start: 20050211
  4. ATHYMIL [Concomitant]
     Route: 048
     Dates: end: 20050211
  5. IMOVANE [Concomitant]
     Route: 048
     Dates: end: 20050211
  6. TEMESTA [Concomitant]
     Route: 048
  7. SECTRAL [Concomitant]
     Dosage: 100MG TWICE PER DAY
     Route: 048
  8. NICARDIPINE HCL [Concomitant]
     Dosage: 50MG TWICE PER DAY
     Route: 048
  9. OGAST [Concomitant]
     Route: 048

REACTIONS (10)
  - ACUTE PULMONARY OEDEMA [None]
  - CREPITATIONS [None]
  - CYANOSIS [None]
  - DRUG INTERACTION [None]
  - ELECTROCARDIOGRAM ST SEGMENT ELEVATION [None]
  - HYPERTENSION [None]
  - INTERSTITIAL LUNG DISEASE [None]
  - PLEURAL EFFUSION [None]
  - PYREXIA [None]
  - TACHYPNOEA [None]
